APPROVED DRUG PRODUCT: HYDROCHLOROTHIAZIDE
Active Ingredient: HYDROCHLOROTHIAZIDE
Strength: 50MG
Dosage Form/Route: TABLET;ORAL
Application: A040412 | Product #002
Applicant: PRINSTON PHARMACEUTICAL INC
Approved: Mar 29, 2002 | RLD: No | RS: No | Type: DISCN